FAERS Safety Report 13601072 (Version 1)
Quarter: 2017Q2

REPORT INFORMATION
  Report Type: Spontaneous
  Country: US (occurrence: US)
  Receive Date: 20170601
  Receipt Date: 20170601
  Transmission Date: 20170830
  Serious: Yes (Other)
  Sender: FDA-Public Use
  Company Number: None

PATIENT
  Age: 45 Year
  Sex: Male
  Weight: 103.5 kg

DRUGS (6)
  1. CETIRIZINE [Concomitant]
     Active Substance: CETIRIZINE HYDROCHLORIDE
  2. FLONASE [Concomitant]
     Active Substance: FLUTICASONE PROPIONATE
  3. AUGMENTIN [Concomitant]
     Active Substance: AMOXICILLIN\CLAVULANATE POTASSIUM
  4. TESSALON [Concomitant]
     Active Substance: BENZONATATE
  5. MEDROL [Concomitant]
     Active Substance: METHYLPREDNISOLONE
  6. DEXAMETHASONE. [Suspect]
     Active Substance: DEXAMETHASONE
     Indication: SINUSITIS
     Dates: start: 20170531, end: 20170531

REACTIONS (4)
  - Gait disturbance [None]
  - Balance disorder [None]
  - Dysstasia [None]
  - Muscular weakness [None]

NARRATIVE: CASE EVENT DATE: 20170531
